FAERS Safety Report 12364499 (Version 2)
Quarter: 2016Q2

REPORT INFORMATION
  Report Type: Spontaneous
  Country: US (occurrence: US)
  Receive Date: 20160512
  Receipt Date: 20160615
  Transmission Date: 20160815
  Serious: No
  Sender: FDA-Public Use
  Company Number: US-ACTELION-A-US2016-133922

PATIENT
  Age: 59 Year
  Sex: Female

DRUGS (3)
  1. ADCIRCA [Concomitant]
     Active Substance: TADALAFIL
  2. VELETRI [Suspect]
     Active Substance: EPOPROSTENOL
     Dosage: 52 NG/KG, PER MIN
     Route: 042
     Dates: start: 20160401
  3. VELETRI [Suspect]
     Active Substance: EPOPROSTENOL
     Indication: PULMONARY HYPERTENSION
     Dosage: 50 NG/KG, PER MIN
     Route: 042
     Dates: start: 20160401

REACTIONS (14)
  - Device connection issue [Unknown]
  - Dizziness exertional [Unknown]
  - Device leakage [Unknown]
  - Pain in jaw [Unknown]
  - Catheter site pruritus [Unknown]
  - Nausea [Unknown]
  - Fatigue [Unknown]
  - Diarrhoea [Unknown]
  - Device occlusion [Unknown]
  - Decreased appetite [Unknown]
  - Asthenia [Unknown]
  - Catheter site erythema [Unknown]
  - Cough [Unknown]
  - Feeling abnormal [Unknown]
